FAERS Safety Report 11821934 (Version 1)
Quarter: 2015Q4

REPORT INFORMATION
  Report Type: Spontaneous
  Country: US (occurrence: US)
  Receive Date: 20151210
  Receipt Date: 20151210
  Transmission Date: 20160305
  Serious: No
  Sender: FDA-Public Use
  Company Number: US-JNJFOC-20150707803

PATIENT
  Age: 84 Year
  Sex: Female

DRUGS (5)
  1. ATENOLOL. [Concomitant]
     Active Substance: ATENOLOL
  2. IMBRUVICA [Suspect]
     Active Substance: IBRUTINIB
     Indication: CHRONIC LYMPHOCYTIC LEUKAEMIA
     Route: 048
     Dates: start: 20150326
  3. IMBRUVICA [Suspect]
     Active Substance: IBRUTINIB
     Indication: LYMPHOMA
     Route: 048
  4. IMBRUVICA [Suspect]
     Active Substance: IBRUTINIB
     Indication: CHRONIC LYMPHOCYTIC LEUKAEMIA
     Route: 048
  5. IMBRUVICA [Suspect]
     Active Substance: IBRUTINIB
     Indication: LYMPHOMA
     Route: 048
     Dates: start: 20150326

REACTIONS (9)
  - Rash erythematous [Unknown]
  - Oesophageal disorder [Unknown]
  - Incorrect dose administered [Not Recovered/Not Resolved]
  - Red blood cell count decreased [Unknown]
  - Vision blurred [Not Recovered/Not Resolved]
  - Peripheral swelling [Unknown]
  - Faeces hard [Unknown]
  - Diarrhoea [Unknown]
  - Dysphagia [Unknown]

NARRATIVE: CASE EVENT DATE: 2015
